FAERS Safety Report 14770281 (Version 1)
Quarter: 2018Q2

REPORT INFORMATION
  Report Type: Spontaneous
  Country: US (occurrence: US)
  Receive Date: 20180417
  Receipt Date: 20180417
  Transmission Date: 20180711
  Serious: No
  Sender: FDA-Public Use
  Company Number: US-MYLANLABS-2018M1022396

PATIENT
  Sex: Male

DRUGS (1)
  1. MERCAPTAMINE [Suspect]
     Active Substance: CYSTEAMINE
     Indication: AMINO ACID METABOLISM DISORDER
     Dosage: 450 MG, TID
     Route: 048
     Dates: start: 20020129

REACTIONS (1)
  - Visual impairment [Unknown]
